FAERS Safety Report 23596709 (Version 1)
Quarter: 2024Q1

REPORT INFORMATION
  Report Type: Spontaneous
  Country: US (occurrence: US)
  Receive Date: 20240305
  Receipt Date: 20240305
  Transmission Date: 20240409
  Serious: No
  Sender: FDA-Public Use
  Company Number: US-TEVA-VS-3142533

PATIENT
  Age: 56 Year
  Sex: Female

DRUGS (1)
  1. AJOVY [Suspect]
     Active Substance: FREMANEZUMAB-VFRM
     Dosage: STRENGTH:  225 MG/1.5 ML-
     Route: 065

REACTIONS (2)
  - Device malfunction [Unknown]
  - Accidental exposure to product [Unknown]
